FAERS Safety Report 15492923 (Version 1)
Quarter: 2018Q4

REPORT INFORMATION
  Report Type: Spontaneous
  Country: US (occurrence: US)
  Receive Date: 20181012
  Receipt Date: 20181012
  Transmission Date: 20190205
  Serious: No
  Sender: FDA-Public Use
  Company Number: US-MYLANLABS-2018M1070809

PATIENT
  Sex: Male

DRUGS (1)
  1. GRANULEX [Suspect]
     Active Substance: CASTOR OIL\PERU BALSAM\TRYPSIN
     Indication: DEBRIDEMENT
     Dosage: UNK
     Route: 061

REACTIONS (1)
  - Off label use [Not Recovered/Not Resolved]
